FAERS Safety Report 14596287 (Version 1)
Quarter: 2018Q1

REPORT INFORMATION
  Report Type: Spontaneous
  Country: US (occurrence: US)
  Receive Date: 20180303
  Receipt Date: 20180303
  Transmission Date: 20180509
  Serious: No
  Sender: FDA-Public Use
  Company Number: US-TEVA-2018-US-865651

PATIENT
  Sex: Female
  Weight: 59 kg

DRUGS (4)
  1. IBUPROFEN. [Concomitant]
     Active Substance: IBUPROFEN
  2. LECITHIN [Concomitant]
     Active Substance: LECITHIN
  3. PARAGARD T 380A [Suspect]
     Active Substance: COPPER
     Indication: CONTRACEPTION
     Dates: start: 20180226
  4. DICLOXACILL [Concomitant]

REACTIONS (2)
  - Vaginal haemorrhage [Unknown]
  - Exposure via breast milk [Unknown]
